FAERS Safety Report 20501883 (Version 1)
Quarter: 2022Q1

REPORT INFORMATION
  Report Type: Spontaneous
  Country: US (occurrence: None)
  Receive Date: 20220222
  Receipt Date: 20220222
  Transmission Date: 20220423
  Serious: No
  Sender: FDA-Public Use
  Company Number: 2022A053080

PATIENT
  Sex: Female
  Weight: 67.6 kg

DRUGS (1)
  1. FARXIGA [Suspect]
     Active Substance: DAPAGLIFLOZIN PROPANEDIOL
     Indication: Diabetes mellitus
     Route: 048
     Dates: start: 202111, end: 20220128

REACTIONS (11)
  - Vulvovaginal burning sensation [Unknown]
  - Urinary tract infection [Unknown]
  - Oropharyngeal pain [Unknown]
  - Oropharyngeal discomfort [Unknown]
  - Vision blurred [Unknown]
  - Pain [Unknown]
  - Urine odour abnormal [Unknown]
  - Erythema [Unknown]
  - Drug ineffective [Unknown]
  - Product dose omission issue [Unknown]
  - Dysuria [Unknown]
